FAERS Safety Report 20340182 (Version 1)
Quarter: 2022Q1

REPORT INFORMATION
  Report Type: Other
  Country: DE (occurrence: DE)
  Receive Date: 20220117
  Receipt Date: 20220117
  Transmission Date: 20220423
  Serious: Yes (Hospitalization, Other)
  Sender: FDA-Public Use
  Company Number: DE-ROCHE-2304431

PATIENT
  Age: 36 Year
  Sex: Female
  Weight: 93 kg

DRUGS (12)
  1. OCREVUS [Suspect]
     Active Substance: OCRELIZUMAB
     Indication: Relapsing-remitting multiple sclerosis
     Route: 042
     Dates: start: 20190402
  2. OCREVUS [Suspect]
     Active Substance: OCRELIZUMAB
     Route: 042
  3. OCREVUS [Suspect]
     Active Substance: OCRELIZUMAB
     Dosage: NEXT DOSE RECEIVED ON 27/OCT/2020
     Route: 042
     Dates: start: 20200422
  4. OCREVUS [Suspect]
     Active Substance: OCRELIZUMAB
     Route: 042
     Dates: start: 20210622
  5. COMIRNATY [Suspect]
     Active Substance: TOZINAMERAN
     Indication: COVID-19 immunisation
     Dosage: FIRST VACCINATION, LAST ADMINISTERED ON 15/APR/2021
     Route: 065
     Dates: start: 20210415
  6. ASPIRIN [Concomitant]
     Active Substance: ASPIRIN
  7. ENALAPRIL [Concomitant]
     Active Substance: ENALAPRIL
  8. GABAPENTIN [Concomitant]
     Active Substance: GABAPENTIN
     Dosage: 1-0-1
  9. AMITRIPTYLINE [Concomitant]
     Active Substance: AMITRIPTYLINE
  10. DOXEPIN [Concomitant]
     Active Substance: DOXEPIN
     Dosage: 0-0-1
  11. INSULIN NOS [Concomitant]
     Active Substance: INSULIN NOS
  12. ACETAMINOPHEN\BUTYLSCOPOLAMINE BROMIDE [Concomitant]
     Active Substance: ACETAMINOPHEN\BUTYLSCOPOLAMINE BROMIDE

REACTIONS (21)
  - Multiple sclerosis relapse [Not Recovered/Not Resolved]
  - Dysphagia [Recovered/Resolved]
  - Cerebrovascular accident [Recovered/Resolved]
  - Tonsillitis [Recovered/Resolved]
  - Dyspnoea [Recovered/Resolved]
  - Dry mouth [Recovered/Resolved]
  - Urinary tract infection [Recovered/Resolved]
  - Asthenia [Recovered/Resolved]
  - Hordeolum [Recovered/Resolved]
  - Fatigue [Recovered/Resolved]
  - Renal function test abnormal [Recovered/Resolved]
  - Pain in extremity [Recovered/Resolved]
  - Peroneal nerve palsy [Recovering/Resolving]
  - Fatigue [Recovering/Resolving]
  - Cerebral haemorrhage [Recovered/Resolved]
  - Trigger finger [Recovered/Resolved]
  - Throat irritation [Recovered/Resolved]
  - Migraine with aura [Not Recovered/Not Resolved]
  - Weight increased [Not Recovered/Not Resolved]
  - Hypoaesthesia [Recovered/Resolved]
  - Cholelithiasis [Recovering/Resolving]

NARRATIVE: CASE EVENT DATE: 20190402
